FAERS Safety Report 25530142 (Version 1)
Quarter: 2025Q3

REPORT INFORMATION
  Report Type: Spontaneous
  Country: US (occurrence: US)
  Receive Date: 20250708
  Receipt Date: 20250708
  Transmission Date: 20251021
  Serious: No
  Sender: IPSEN BIOPHARMACEUTICALS, INC.
  Company Number: US-IPSEN Group, Research and Development-2024-14444

PATIENT
  Age: 64 Year
  Sex: Male

DRUGS (11)
  1. BYLVAY [Suspect]
     Active Substance: ODEVIXIBAT
     Indication: Bilirubin excretion disorder
     Dosage: 2400 MCG (TWO 1200 MCG CAPSULE) ONCE DAILY
     Dates: start: 20240220
  2. ALBUTEROL [Concomitant]
     Active Substance: ALBUTEROL
  3. CETIRIZINE [Concomitant]
     Active Substance: CETIRIZINE HYDROCHLORIDE
  4. CONSTULOSE [Concomitant]
     Active Substance: LACTULOSE
  5. FLUTICASONE [Concomitant]
     Active Substance: FLUTICASONE
  6. HYDROXYZINE [Concomitant]
     Active Substance: HYDROXYZINE HYDROCHLORIDE
  7. OMEPRAZOLE [Concomitant]
     Active Substance: OMEPRAZOLE
  8. SIMETHICONE (DIMETHICONE) [Concomitant]
     Active Substance: DIMETHICONE
  9. TRELEGY ELLIPTA [Concomitant]
     Active Substance: FLUTICASONE FUROATE\UMECLIDINIUM BROMIDE\VILANTEROL TRIFENATATE
  10. URSODIOL [Concomitant]
     Active Substance: URSODIOL
  11. XIFAXAN [Concomitant]
     Active Substance: RIFAXIMIN

REACTIONS (1)
  - Abdominal pain upper [Not Recovered/Not Resolved]
